FAERS Safety Report 23991122 (Version 1)
Quarter: 2024Q2

REPORT INFORMATION
  Report Type: Spontaneous
  Country: FR (occurrence: None)
  Receive Date: 20240619
  Receipt Date: 20240619
  Transmission Date: 20240716
  Serious: Yes (Other)
  Sender: FDA-Public Use
  Company Number: 2024A140481

PATIENT
  Age: 26 Year
  Sex: Female

DRUGS (3)
  1. QUETIAPINE FUMARATE [Suspect]
     Active Substance: QUETIAPINE FUMARATE
     Dates: start: 20240507, end: 20240525
  2. PAROXETINE HYDROCHLORIDE [Suspect]
     Active Substance: PAROXETINE HYDROCHLORIDE\PAROXETINE HYDROCHLORIDE ANHYDROUS
     Dosage: 20 MILLIGRAM EVERY 1 DAY
     Dates: start: 20230820, end: 20240523
  3. XANAX [Concomitant]
     Active Substance: ALPRAZOLAM

REACTIONS (6)
  - Oculogyric crisis [Recovering/Resolving]
  - Cholinergic syndrome [Recovering/Resolving]
  - Hyperhidrosis [Recovering/Resolving]
  - Pyrexia [Recovering/Resolving]
  - Insomnia [Recovering/Resolving]
  - Vomiting [Recovering/Resolving]
